FAERS Safety Report 4720823-9 (Version None)
Quarter: 2005Q3

REPORT INFORMATION
  Report Type: 
  Country: None (occurrence: None)
  Receive Date: 20050720
  Receipt Date: 20050705
  Transmission Date: 20060218
  Serious: Yes (Other)
  Sender: FDA-Public Use
  Company Number: 05-000500

PATIENT
  Age: 37 Year
  Sex: Female

DRUGS (1)
  1. PYRIDIUM (PHENAZOPYRIDIN HYDROCHLORIDE) TABLET [Suspect]

REACTIONS (1)
  - TACHYARRHYTHMIA [None]
